FAERS Safety Report 7356132-1 (Version None)
Quarter: 2011Q1

REPORT INFORMATION
  Report Type: 
  Country: None (occurrence: None)
  Receive Date: 20110316
  Receipt Date: 20110308
  Transmission Date: 20110831
  Serious: Yes (Other)
  Sender: FDA-Public Use
  Company Number: US-ELI_LILLY_AND_COMPANY-US201103002977

PATIENT
  Age: 67 Year
  Sex: Female

DRUGS (4)
  1. ZYPREXA [Suspect]
     Indication: BIPOLAR DISORDER
     Dosage: 2.5 MG, UNK
     Dates: start: 20110118
  2. WELLBUTRIN [Concomitant]
  3. SEROQUEL [Concomitant]
  4. ZYPREXA [Suspect]
     Dosage: 5 MG, UNK

REACTIONS (3)
  - DRUG INEFFECTIVE [None]
  - INCREASED APPETITE [None]
  - TOXIC ENCEPHALOPATHY [None]
